FAERS Safety Report 7093142-6 (Version None)
Quarter: 2010Q4

REPORT INFORMATION
  Report Type: 
  Country: None (occurrence: None)
  Receive Date: 20101110
  Receipt Date: 20090304
  Transmission Date: 20110411
  Serious: No
  Sender: FDA-Public Use
  Company Number: US-KINGPHARMUSA00001-K200900236

PATIENT
  Sex: Female

DRUGS (2)
  1. BICILLIN L-A [Suspect]
     Indication: LYME DISEASE
     Dosage: 1200000 U, UNK
     Route: 030
     Dates: start: 20070101
  2. ROCEPHIN [Concomitant]
     Dosage: 2 G, QD
     Route: 030

REACTIONS (2)
  - INJECTION SITE MASS [None]
  - INJECTION SITE SWELLING [None]
